FAERS Safety Report 5828962-6 (Version None)
Quarter: 2008Q3

REPORT INFORMATION
  Report Type: 
  Country: None (occurrence: None)
  Receive Date: 20080731
  Receipt Date: 20080718
  Transmission Date: 20090109
  Serious: Yes (Hospitalization)
  Sender: FDA-Public Use
  Company Number: PHEH2008US02803

PATIENT
  Sex: Male
  Weight: 72.109 kg

DRUGS (7)
  1. GLEEVEC [Suspect]
     Indication: CARCINOID TUMOUR
     Dosage: 400 MG, QD
     Route: 048
     Dates: start: 20071120, end: 20080222
  2. CATAPRES                                /USA/ [Concomitant]
     Indication: HYPERTENSION
     Dosage: UNK
  3. VERAPAMIL [Concomitant]
     Dosage: UNK
  4. CARDURA                                 /IRE/ [Concomitant]
     Dosage: UNK
  5. PROTONIX [Concomitant]
     Indication: DYSPEPSIA
  6. ADVAIR DISKUS 100/50 [Concomitant]
     Dosage: 100/500 1 INHALATION BID
  7. FLOMAX [Concomitant]

REACTIONS (18)
  - ANAEMIA [None]
  - AZOTAEMIA [None]
  - BENIGN PROSTATIC HYPERPLASIA [None]
  - BLADDER OBSTRUCTION [None]
  - BLOOD CREATININE INCREASED [None]
  - BLOOD SODIUM DECREASED [None]
  - BLOOD UREA INCREASED [None]
  - CYSTOSTOMY [None]
  - DEHYDRATION [None]
  - DRUG INEFFECTIVE [None]
  - FATIGUE [None]
  - HAEMOGLOBIN DECREASED [None]
  - HYPOKALAEMIA [None]
  - MALNUTRITION [None]
  - OBSTRUCTIVE UROPATHY [None]
  - RENAL FAILURE ACUTE [None]
  - RENAL FAILURE CHRONIC [None]
  - TRANSURETHRAL PROSTATECTOMY [None]
